FAERS Safety Report 8792044 (Version 2)
Quarter: 2013Q4

REPORT INFORMATION
  Report Type: Spontaneous
  Country: US (occurrence: US)
  Receive Date: 20120918
  Receipt Date: 20131031
  Transmission Date: 20140711
  Serious: Yes (Other)
  Sender: FDA-Public Use
  Company Number: US-009507513-1209USA006046

PATIENT
  Sex: Female

DRUGS (1)
  1. SAPHRIS [Suspect]
     Dosage: 5 MG, 17:00
     Route: 060

REACTIONS (7)
  - Discomfort [Unknown]
  - Confusional state [Unknown]
  - Restlessness [Unknown]
  - Dysphagia [Unknown]
  - Abasia [Unknown]
  - Somnolence [Unknown]
  - Insomnia [Unknown]
